FAERS Safety Report 7451304-X (Version None)
Quarter: 2011Q2

REPORT INFORMATION
  Report Type: 
  Country: None (occurrence: None)
  Receive Date: 20110502
  Receipt Date: 20110421
  Transmission Date: 20111010
  Serious: Yes (Other)
  Sender: FDA-Public Use
  Company Number: NL-ASTRAZENECA-2011SE23055

PATIENT
  Sex: Female

DRUGS (1)
  1. ZOLADEX [Suspect]
     Route: 058
     Dates: start: 20090101

REACTIONS (3)
  - HEADACHE [None]
  - VOMITING [None]
  - NASAL CONGESTION [None]
